FAERS Safety Report 22073233 (Version 3)
Quarter: 2023Q2

REPORT INFORMATION
  Report Type: Spontaneous
  Country: DE (occurrence: DE)
  Receive Date: 20230308
  Receipt Date: 20230403
  Transmission Date: 20230721
  Serious: Yes (Life-Threatening, Hospitalization, Other)
  Sender: FDA-Public Use
  Company Number: DE-ALKEM LABORATORIES LIMITED-DE-ALKEM-2023-02652

PATIENT
  Age: 20 Year
  Sex: Female

DRUGS (3)
  1. IBUPROFEN [Interacting]
     Active Substance: IBUPROFEN
     Indication: Product used for unknown indication
     Dosage: (UNKNOWN AMOUNTS)
     Route: 048
  2. QUETIAPINE FUMARATE [Interacting]
     Active Substance: QUETIAPINE FUMARATE
     Indication: Product used for unknown indication
     Dosage: (UNKNOWN AMOUNTS) (FILM-COATED TABLET)
     Route: 048
  3. VENLAFAXINE [Interacting]
     Active Substance: VENLAFAXINE HYDROCHLORIDE
     Indication: Product used for unknown indication
     Dosage: (UNKNOWN AMOUNTS)
     Route: 048

REACTIONS (5)
  - Acute kidney injury [Recovered/Resolved]
  - Hypoglycaemia [Recovered/Resolved]
  - Toxicity to various agents [Recovered/Resolved]
  - Drug interaction [Unknown]
  - Overdose [Unknown]
